FAERS Safety Report 16912854 (Version 2)
Quarter: 2019Q4

REPORT INFORMATION
  Report Type: Spontaneous
  Country: FR (occurrence: FR)
  Receive Date: 20191014
  Receipt Date: 20191225
  Transmission Date: 20200122
  Serious: Yes (Hospitalization)
  Sender: FDA-Public Use
  Company Number: FR-TEVA-2019-FR-1120681

PATIENT
  Age: 56 Year
  Sex: Female
  Weight: 76.5 kg

DRUGS (17)
  1. SPECIAFOLDINE 5 MG, COMPRIME [Concomitant]
     Active Substance: FOLIC ACID
  2. IRBESARTAN. [Concomitant]
     Active Substance: IRBESARTAN
  3. INEXIUM 40 MG, COMPRIME GASTRO-RESISTANT [Concomitant]
     Active Substance: ESOMEPRAZOLE MAGNESIUM
  4. ATORVASTATINE [Concomitant]
     Active Substance: ATORVASTATIN
  5. LASILIX FAIBLE 20 MG, COMPRIME [Concomitant]
     Active Substance: FUROSEMIDE
  6. ADOPORT 0,5 MG, GELULE [Suspect]
     Active Substance: TACROLIMUS
     Dosage: 1 MG, 0,5 MG, GELULE
     Route: 048
  7. BISOCE 2,5 MG, COMPRIME PELLICULE SECABLE [Concomitant]
     Active Substance: BISOPROLOL FUMARATE
  8. BACTRIM [Concomitant]
     Active Substance: SULFAMETHOXAZOLE\TRIMETHOPRIM
  9. MOTILIUM [Concomitant]
     Active Substance: DOMPERIDONE
  10. MODIGRAF 1 MG, GRANULES POUR SUSPENSION BUVABLE [Concomitant]
  11. ADOPORT 0,5 MG, GELULE [Concomitant]
     Active Substance: TACROLIMUS
  12. ZELITREX 500 MG, COMPRIME ENROBE [Concomitant]
     Active Substance: VALACYCLOVIR HYDROCHLORIDE
  13. PREDNISONE. [Suspect]
     Active Substance: PREDNISONE
     Indication: LUPUS NEPHRITIS
     Route: 048
     Dates: start: 1979
  14. ASPEGIC [Concomitant]
  15. OROCAL D3, COMPRIME A SUCER [Concomitant]
  16. CELLCEPT [Concomitant]
     Active Substance: MYCOPHENOLATE MOFETIL\MYCOPHENOLATE MOFETIL HYDROCHLORIDE
  17. FOSAMAX 70 MG, COMPRIME [Concomitant]

REACTIONS (1)
  - Type 2 diabetes mellitus [Not Recovered/Not Resolved]

NARRATIVE: CASE EVENT DATE: 201907
